FAERS Safety Report 4704921-1 (Version None)
Quarter: 2005Q3

REPORT INFORMATION
  Report Type: 
  Country: None (occurrence: None)
  Receive Date: 20050701
  Receipt Date: 20050621
  Transmission Date: 20060218
  Serious: Yes (Other)
  Sender: FDA-Public Use
  Company Number: PHFR2005GB02225

PATIENT
  Sex: Female

DRUGS (2)
  1. FEMARA [Suspect]
     Dosage: 1 TABLET DAILY
     Dates: start: 20041001
  2. TAMOXIFEN [Concomitant]

REACTIONS (1)
  - MACULAR DEGENERATION [None]
